FAERS Safety Report 10747672 (Version 1)
Quarter: 2015Q1

REPORT INFORMATION
  Report Type: Report from Study
  Country: US (occurrence: None)
  Receive Date: 20150120
  Receipt Date: 20150120
  Transmission Date: 20150721
  Serious: No
  Sender: FDA-Public Use
  Company Number: AEGR000987

PATIENT
  Age: 72 Year
  Sex: Female
  Weight: 63.5 kg

DRUGS (23)
  1. JUXTAPID [Suspect]
     Active Substance: LOMITAPIDE MESYLATE
     Indication: TYPE IIA HYPERLIPIDAEMIA
     Route: 048
     Dates: start: 20130215, end: 20130407
  2. ASACOL [Concomitant]
     Active Substance: MESALAMINE
  3. ALPRAZOLAM. [Concomitant]
     Active Substance: ALPRAZOLAM
  4. BABY ASPIRIN (ACETYLSALICYLIC ACID) [Concomitant]
     Active Substance: ASPIRIN
  5. CITALOPRAM [Concomitant]
     Active Substance: CITALOPRAM HYDROBROMIDE
  6. TRAZODONE [Concomitant]
     Active Substance: TRAZODONE HYDROCHLORIDE
  7. CHROMIUM [Concomitant]
     Active Substance: CHROMIC CHLORIDE\CHROMIUM
  8. NORCO (HYDROCODONE BITARTRATE, PARACETAMOL) [Concomitant]
  9. MAGNESIUM GLUCEPTATE [Concomitant]
     Active Substance: MAGNESIUM GLUCEPTATE
  10. LEVOCARNITINE. [Concomitant]
     Active Substance: LEVOCARNITINE
  11. PREVACID [Concomitant]
     Active Substance: LANSOPRAZOLE
  12. NITROSTAT (GLYCERYL TRINITRATE) [Concomitant]
  13. ZETIA [Concomitant]
     Active Substance: EZETIMIBE
  14. AMLODIPINE [Concomitant]
     Active Substance: AMLODIPINE BESYLATE
  15. COQ10 (UBIDECARENONE) [Concomitant]
     Active Substance: UBIDECARENONE
  16. VITAMIN B COMPLEX [Concomitant]
     Active Substance: CYANOCOBALAMIN\DEXPANTHENOL\NIACINAMIDE\PYRIDOXINE HYDROCHLORIDE\RIBOFLAVIN 5^-PHOSPHATE SODIUM\THIAMINE HYDROCHLORIDE\VITAMIN B COMPLEX
  17. NIASPAN (NICOTINIC ACID) [Concomitant]
  18. FERROUS GLUCONATE [Concomitant]
     Active Substance: FERROUS GLUCONATE
  19. VITAMIN D3 [Concomitant]
     Active Substance: CHOLECALCIFEROL
  20. LEVOTHYROXINE [Concomitant]
     Active Substance: LEVOTHYROXINE
  21. TOPROL (METOPROLOL SUCCINATE) [Concomitant]
  22. FISH OIL [Concomitant]
     Active Substance: FISH OIL
  23. VASOTEC (ENALAPRIL MALEATE) [Concomitant]

REACTIONS (1)
  - Diarrhoea [None]

NARRATIVE: CASE EVENT DATE: 201411
